FAERS Safety Report 12650742 (Version 1)
Quarter: 2016Q3

REPORT INFORMATION
  Report Type: Spontaneous
  Country: US (occurrence: None)
  Receive Date: 20160812
  Receipt Date: 20160812
  Transmission Date: 20161109
  Serious: Yes (Other)
  Sender: FDA-Public Use
  Company Number: None

PATIENT
  Age: 53 Year
  Sex: Female
  Weight: 67.13 kg

DRUGS (4)
  1. VITAMINS [Concomitant]
     Active Substance: VITAMINS
  2. ASPIRIN. [Concomitant]
     Active Substance: ASPIRIN
  3. VALIM [Concomitant]
  4. PREMARIN [Suspect]
     Active Substance: ESTROGENS, CONJUGATED
     Indication: ATROPHIC VULVOVAGINITIS
     Route: 067
     Dates: start: 20160731

REACTIONS (6)
  - Application site pain [None]
  - Application site discomfort [None]
  - Product physical issue [None]
  - Product contamination physical [None]
  - Product contamination microbial [None]
  - Dysuria [None]

NARRATIVE: CASE EVENT DATE: 20160731
